FAERS Safety Report 6168708-8 (Version None)
Quarter: 2009Q2

REPORT INFORMATION
  Report Type: 
  Country: None (occurrence: None)
  Receive Date: 20090427
  Receipt Date: 20090423
  Transmission Date: 20091009
  Serious: Yes (Death, Hospitalization)
  Sender: FDA-Public Use
  Company Number: US-ABBOTT-09P-163-0568954-00

PATIENT
  Sex: Female
  Weight: 61.744 kg

DRUGS (1)
  1. HUMIRA [Suspect]
     Indication: RHEUMATOID ARTHRITIS
     Route: 058
     Dates: start: 20080420, end: 20090226

REACTIONS (4)
  - COUGH [None]
  - OEDEMA PERIPHERAL [None]
  - SMALL CELL LUNG CANCER STAGE UNSPECIFIED [None]
  - SWELLING FACE [None]
